FAERS Safety Report 14298429 (Version 1)
Quarter: 2017Q4

REPORT INFORMATION
  Report Type: Spontaneous
  Country: CO (occurrence: CO)
  Receive Date: 20171215
  Receipt Date: 20171215
  Transmission Date: 20180321
  Serious: Yes (Death, Life-Threatening, Disabling)
  Sender: FDA-Public Use
  Company Number: None

PATIENT
  Age: 35 Year
  Sex: Female
  Weight: 56.25 kg

DRUGS (5)
  1. ATIVAN [Suspect]
     Active Substance: LORAZEPAM
     Indication: INSOMNIA
     Route: 048
     Dates: start: 20170901
  2. GUANFACINE. [Concomitant]
     Active Substance: GUANFACINE
  3. PROZAC [Concomitant]
     Active Substance: FLUOXETINE HYDROCHLORIDE
  4. LATUDA [Suspect]
     Active Substance: LURASIDONE HYDROCHLORIDE
     Indication: DEPRESSION
     Route: 048
     Dates: start: 20170802, end: 20170930
  5. EVEKIO [Concomitant]

REACTIONS (6)
  - Insomnia [None]
  - Anxiety [None]
  - Depression [None]
  - Drug withdrawal syndrome [None]
  - Tremor [None]
  - Completed suicide [None]

NARRATIVE: CASE EVENT DATE: 20171102
